FAERS Safety Report 10253036 (Version 3)
Quarter: 2014Q3

REPORT INFORMATION
  Report Type: Report from Study
  Country: TW (occurrence: TW)
  Receive Date: 20140623
  Receipt Date: 20140703
  Transmission Date: 20150326
  Serious: Yes (Life-Threatening, Hospitalization, Other)
  Sender: FDA-Public Use
  Company Number: TW-BAYER-2014-089087

PATIENT
  Age: 49 Year
  Sex: Male

DRUGS (2)
  1. REGORAFENIB [Suspect]
     Active Substance: REGORAFENIB
     Indication: GASTROINTESTINAL STROMAL CANCER
     Dosage: DAY 15
  2. REGORAFENIB [Suspect]
     Active Substance: REGORAFENIB
     Indication: GASTROINTESTINAL STROMAL CANCER
     Dosage: 80 MG, BID
     Route: 048
     Dates: start: 20140515

REACTIONS (8)
  - Altered state of consciousness [None]
  - Biliary tract infection [Not Recovered/Not Resolved]
  - Septic shock [None]
  - Jaundice [Not Recovered/Not Resolved]
  - Cerebral atrophy [None]
  - Incontinence [None]
  - Jaundice [None]
  - Altered state of consciousness [Not Recovered/Not Resolved]

NARRATIVE: CASE EVENT DATE: 2014
